FAERS Safety Report 5331246-6 (Version None)
Quarter: 2007Q1

REPORT INFORMATION
  Report Type: 
  Country: None (occurrence: None)
  Receive Date: 20070227
  Receipt Date: 20060106
  Transmission Date: 20070707
  Serious: Yes (Other)
  Sender: FDA-Public Use
  Company Number: 431471

PATIENT
  Age: 19 Year
  Sex: Male
  Weight: 83 kg

DRUGS (2)
  1. ACCUTANE [Suspect]
     Indication: ACNE
     Dosage: 40 MG 2 PER DAY ORAL
     Route: 048
     Dates: start: 20050815, end: 20051220
  2. ANTIBIOTICS (ANTIBIOTICS NOS) [Concomitant]

REACTIONS (1)
  - PLATELET COUNT DECREASED [None]
